FAERS Safety Report 14517855 (Version 3)
Quarter: 2019Q4

REPORT INFORMATION
  Report Type: Report from Study
  Country: NL (occurrence: NL)
  Receive Date: 20180212
  Receipt Date: 20191120
  Transmission Date: 20200122
  Serious: Yes (Other)
  Sender: FDA-Public Use
  Company Number: NL-AMGEN-NLDSL2018017185

PATIENT
  Age: 72 Year
  Sex: Female

DRUGS (10)
  1. XGEVA [Suspect]
     Active Substance: DENOSUMAB
     Dosage: 120 INJECTED 70 MILLIGRAM PER MILLILITER VIAL 1.7 MILLILITER, Q4WK
     Route: 065
  2. ACENOCOUMAROL [Concomitant]
     Active Substance: ACENOCOUMAROL
     Dosage: 1 MILLIGRAM
  3. XGEVA [Suspect]
     Active Substance: DENOSUMAB
     Dosage: UNK
     Route: 058
  4. MEGESTROL [MEGESTROL ACETATE] [Concomitant]
     Dosage: 160 MILLIGRAM, 1D1T
  5. PROPRANOLOL [Concomitant]
     Active Substance: PROPRANOLOL HYDROCHLORIDE
     Dosage: 80 MILLIGRAM, 3D1T
  6. XGEVA [Suspect]
     Active Substance: DENOSUMAB
     Indication: PROPHYLAXIS
     Dosage: 120 MG, IN 1,70 ML Q4WK
     Route: 058
  7. DIGOXINE [Concomitant]
     Active Substance: DIGOXIN
     Dosage: 0.125 MILLIGRAM, 1D1T
  8. LISINOPRIL. [Concomitant]
     Active Substance: LISINOPRIL
     Dosage: 5 MILLIGRAM, 1D1T
  9. PANTOPRAZOL [PANTOPRAZOLE] [Concomitant]
     Active Substance: PANTOPRAZOLE
     Dosage: 20 MILLIGRAM, 1D1T
  10. CALCIUM CARBONATE W/VITAMIN D [CALCIUM CARBONATE;COLECALCIFEROL] [Concomitant]
     Active Substance: CALCIUM CARBONATE\CHOLECALCIFEROL
     Dosage: 2.5G/880IE (1000MG CA), 1D1T

REACTIONS (3)
  - Tooth extraction [Unknown]
  - Osteonecrosis of jaw [Unknown]
  - Abscess jaw [Recovering/Resolving]
